FAERS Safety Report 5292445-5 (Version None)
Quarter: 2007Q2

REPORT INFORMATION
  Report Type: 
  Country: None (occurrence: None)
  Receive Date: 20070410
  Receipt Date: 20070329
  Transmission Date: 20071010
  Serious: Yes (Death)
  Sender: FDA-Public Use
  Company Number: IE-PFIZER INC-2007002445

PATIENT
  Age: 65 Year
  Sex: Male

DRUGS (10)
  1. ZYVOX [Suspect]
     Indication: ABDOMINAL INFECTION
     Route: 048
     Dates: start: 20061015, end: 20061206
  2. ZYVOX [Suspect]
     Indication: ENTEROCOCCAL INFECTION
  3. SERTRALINE [Concomitant]
     Indication: DEPRESSION
     Dosage: DAILY DOSE:50MG
     Route: 048
     Dates: start: 20061101, end: 20061211
  4. ZOTON [Concomitant]
     Route: 048
  5. GALFER [Concomitant]
     Indication: ANAEMIA
     Route: 048
  6. AMIODARONE HCL [Concomitant]
     Indication: ATRIAL FIBRILLATION
     Dosage: DAILY DOSE:200MG
     Route: 048
  7. WARFARIN SODIUM [Concomitant]
  8. DOMPERIDONE [Concomitant]
  9. VENTOLIN [Concomitant]
     Route: 055
  10. METOCLOPRAMIDE HYDROCHLORIDE [Concomitant]

REACTIONS (4)
  - PANCYTOPENIA [None]
  - RESPIRATORY FAILURE [None]
  - SEPSIS [None]
  - THROMBOCYTOPENIA [None]
